FAERS Safety Report 7534301-5 (Version None)
Quarter: 2011Q2

REPORT INFORMATION
  Report Type: 
  Country: None (occurrence: None)
  Receive Date: 20110608
  Receipt Date: 20061219
  Transmission Date: 20111010
  Serious: Yes (Death, Hospitalization, Other)
  Sender: FDA-Public Use
  Company Number: PHMT2006CA01819

PATIENT
  Sex: Male

DRUGS (3)
  1. CLOZAPINE [Suspect]
     Dosage: UNK
     Route: 048
     Dates: start: 20041005
  2. CLOZAPINE [Suspect]
     Dosage: UNK, UNK
     Route: 048
     Dates: start: 20060912
  3. CLOZAPINE [Suspect]
     Dosage: UNK
     Route: 048
     Dates: start: 19960115, end: 20041004

REACTIONS (3)
  - LUNG NEOPLASM MALIGNANT [None]
  - LUNG INFECTION [None]
  - DEATH [None]
